FAERS Safety Report 18751321 (Version 1)
Quarter: 2021Q1

REPORT INFORMATION
  Report Type: Spontaneous
  Country: US (occurrence: US)
  Receive Date: 20210118
  Receipt Date: 20210118
  Transmission Date: 20210419
  Serious: No
  Sender: FDA-Public Use
  Company Number: US-SA-2021SA007954

PATIENT
  Age: 56 Year
  Sex: Female

DRUGS (1)
  1. DUPIXENT [Suspect]
     Active Substance: DUPILUMAB
     Indication: ASTHMA
     Dosage: 2 ML, QOW
     Route: 058
     Dates: start: 20201023

REACTIONS (4)
  - Urticaria [Unknown]
  - Product use issue [Unknown]
  - Arthralgia [Unknown]
  - Swelling face [Unknown]

NARRATIVE: CASE EVENT DATE: 20201023
